FAERS Safety Report 22103552 (Version 1)
Quarter: 2023Q1

REPORT INFORMATION
  Report Type: Spontaneous
  Country: US (occurrence: US)
  Receive Date: 20230316
  Receipt Date: 20230316
  Transmission Date: 20230418
  Serious: No
  Sender: FDA-Public Use
  Company Number: US-SMITH AND NEPHEW, INC-2022SMT00021

PATIENT
  Sex: Female
  Weight: 43.537 kg

DRUGS (7)
  1. COLLAGENASE SANTYL [Suspect]
     Active Substance: COLLAGENASE CLOSTRIDIUM HISTOLYTICUM
     Indication: Wound
     Dosage: 30 G, 1X/DAY, ON HER LEGS FROM HER KNEES TO HER ANKLES
     Route: 061
     Dates: start: 202110
  2. COLLAGENASE SANTYL [Suspect]
     Active Substance: COLLAGENASE CLOSTRIDIUM HISTOLYTICUM
     Indication: Scab
     Dosage: TRY TO GET A WEEK^S WORTH OUT OF THE 30 G TUBE; PUT IT ON THE OUTER EDGES AND USE IT SPARINGLY AS PO
     Route: 061
     Dates: end: 20220209
  3. COLLAGENASE SANTYL [Suspect]
     Active Substance: COLLAGENASE CLOSTRIDIUM HISTOLYTICUM
     Indication: Wound treatment
     Dosage: USE SSD FOR A COUPLE WEEKS AND THEN SWITCH TO SANTYL FOR 2 WEEKS
     Route: 061
     Dates: start: 202202
  4. WARFARIN [Concomitant]
     Active Substance: WARFARIN
  5. LEVOXYL [Concomitant]
     Active Substance: LEVOTHYROXINE SODIUM
  6. UNSPECIFIED ^BLOOD PRESSURE STUFF^ [Concomitant]
  7. UNSPECIFIED INGREDIENT [Concomitant]
     Active Substance: UNSPECIFIED INGREDIENT

REACTIONS (1)
  - Wound secretion [Not Recovered/Not Resolved]

NARRATIVE: CASE EVENT DATE: 20220101
